FAERS Safety Report 12250441 (Version 2)
Quarter: 2016Q2

REPORT INFORMATION
  Report Type: Report from Study
  Country: GR (occurrence: GR)
  Receive Date: 20160408
  Receipt Date: 20160427
  Transmission Date: 20160815
  Serious: Yes (Hospitalization, Other)
  Sender: FDA-Public Use
  Company Number: GR-ELI_LILLY_AND_COMPANY-GR201604000423

PATIENT
  Age: 69 Year
  Sex: Female

DRUGS (10)
  1. CALCIORAL /00207901/ [Concomitant]
     Active Substance: CALCIUM PHOSPHATE\ERGOCALCIFEROL
     Indication: OSTEOPOROSIS
  2. SALOSPIR [Suspect]
     Active Substance: ASPIRIN
     Indication: CARDIAC DISORDER
     Dosage: UNK UNK, UNKNOWN
     Route: 065
  3. LEXOTANIL [Concomitant]
     Active Substance: BROMAZEPAM
  4. SERETIDE [Concomitant]
     Active Substance: FLUTICASONE PROPIONATE\SALMETEROL XINAFOATE
     Indication: CHRONIC OBSTRUCTIVE PULMONARY DISEASE
     Dosage: UNK
  5. PROCORALAN [Concomitant]
     Active Substance: IVABRADINE
     Indication: HEART RATE
  6. FORSTEO [Suspect]
     Active Substance: TERIPARATIDE
     Indication: OSTEOPOROSIS
     Dosage: 20 UG, QD
     Route: 058
     Dates: start: 20150303
  7. CARVEPEN [Concomitant]
     Active Substance: CARVEDILOL
     Indication: CARDIAC DISORDER
     Dosage: UNK
  8. COVERAM [Concomitant]
     Active Substance: AMLODIPINE\PERINDOPRIL
     Indication: CARDIAC DISORDER
     Dosage: UNK
  9. PANAC [Suspect]
     Active Substance: AMPICILLIN TRIHYDRATE\DICLOXACILLIN SODIUM
     Indication: PRODUCT USED FOR UNKNOWN INDICATION
     Dosage: UNK, UNKNOWN
     Route: 065
  10. SPIRIVA [Concomitant]
     Active Substance: TIOTROPIUM BROMIDE MONOHYDRATE
     Indication: CHRONIC OBSTRUCTIVE PULMONARY DISEASE
     Dosage: UNK

REACTIONS (1)
  - Drug-induced liver injury [Recovering/Resolving]
